FAERS Safety Report 7298992-9 (Version None)
Quarter: 2011Q1

REPORT INFORMATION
  Report Type: 
  Country: None (occurrence: None)
  Receive Date: 20110217
  Receipt Date: 20110126
  Transmission Date: 20110831
  Serious: No
  Sender: FDA-Public Use
  Company Number: US-B.I. PHARMACEUTICALS,INC./RIDGEFIELD-2011-BP-02927BP

PATIENT
  Sex: Female

DRUGS (8)
  1. PREMARIN [Concomitant]
     Indication: UTERINE DISORDER
  2. MULTIVITAMIN [Concomitant]
     Indication: PROPHYLAXIS
  3. SPIRIVA [Suspect]
     Indication: CHRONIC OBSTRUCTIVE PULMONARY DISEASE
     Dosage: 18 MCG
     Route: 055
     Dates: start: 20101214
  4. ASPIRIN [Concomitant]
     Indication: PROPHYLAXIS
  5. BONIVA [Concomitant]
     Indication: OSTEOPOROSIS
  6. CLARITIN [Concomitant]
     Indication: CHRONIC OBSTRUCTIVE PULMONARY DISEASE
  7. ADVAIR DISKUS 100/50 [Suspect]
     Indication: CHRONIC OBSTRUCTIVE PULMONARY DISEASE
     Dates: start: 20101214, end: 20110101
  8. ALBUTEROL [Concomitant]
     Indication: CHRONIC OBSTRUCTIVE PULMONARY DISEASE

REACTIONS (2)
  - DYSPNOEA [None]
  - MUSCLE SPASMS [None]
